FAERS Safety Report 7564907-9 (Version None)
Quarter: 2011Q2

REPORT INFORMATION
  Report Type: 
  Country: None (occurrence: None)
  Receive Date: 20110622
  Receipt Date: 20110321
  Transmission Date: 20111010
  Serious: Yes (Hospitalization)
  Sender: FDA-Public Use
  Company Number: US-MYLANLABS-2011S1003005

PATIENT
  Age: 30 Year
  Sex: Male
  Weight: 70.76 kg

DRUGS (4)
  1. DIPHENHYDRAMINE HCL [Concomitant]
     Route: 048
     Dates: start: 20101231, end: 20110117
  2. CLOZAPINE [Suspect]
     Route: 048
     Dates: start: 20110113, end: 20110124
  3. BENZTROPINE MESYLATE [Concomitant]
  4. CLOZAPINE [Suspect]
     Indication: SCHIZOAFFECTIVE DISORDER
     Route: 048
     Dates: start: 20110113, end: 20110124

REACTIONS (5)
  - SEPSIS [None]
  - PLEURAL EFFUSION [None]
  - PYREXIA [None]
  - PNEUMONIA [None]
  - TACHYCARDIA [None]
